FAERS Safety Report 21142565 (Version 2)
Quarter: 2022Q3

REPORT INFORMATION
  Report Type: Spontaneous
  Country: JP (occurrence: JP)
  Receive Date: 20220728
  Receipt Date: 20220907
  Transmission Date: 20221027
  Serious: Yes (Other)
  Sender: FDA-Public Use
  Company Number: JP-PFIZER INC-PV202200029301

PATIENT
  Age: 87 Year
  Sex: Female
  Weight: 41.6 kg

DRUGS (13)
  1. PAXLOVID [Suspect]
     Active Substance: NIRMATRELVIR\RITONAVIR
     Indication: COVID-19 treatment
     Dosage: [PF-07321332 150 MG]/[RITONAVIR 100 MG]; 2X/DAY
     Route: 048
     Dates: start: 20220722, end: 20220723
  2. MEMANTINE HYDROCHLORIDE [Concomitant]
     Active Substance: MEMANTINE HYDROCHLORIDE
     Indication: Dementia Alzheimer^s type
     Dosage: 5 MG, 1X/DAY
     Route: 048
     Dates: start: 20220618
  3. ROZEREM [Concomitant]
     Active Substance: RAMELTEON
     Indication: Insomnia
     Dosage: 8 MG, 1X/DAY
     Route: 048
     Dates: start: 20220702
  4. BENIDIPINE [Concomitant]
     Active Substance: BENIDIPINE
     Indication: Hypertension
     Dosage: 8 MG, 1X/DAY
     Route: 048
     Dates: start: 20220620
  5. METGLUCO [Concomitant]
     Active Substance: METFORMIN HYDROCHLORIDE
     Indication: Diabetes mellitus
     Dosage: 250 MG, 1X/DAY
     Route: 048
     Dates: start: 20220620
  6. ALINAMIN [FURSULTIAMINE HYDROCHLORIDE] [Concomitant]
     Dosage: 25 MG, 3X/DAY
     Route: 048
     Dates: start: 20220621
  7. DISTIGMINE BROMIDE [Concomitant]
     Active Substance: DISTIGMINE BROMIDE
     Indication: Dysuria
     Dosage: 5 MG, 1X/DAY
     Route: 048
  8. OLMESARTAN [Concomitant]
     Active Substance: OLMESARTAN
     Indication: Hypertension
     Dosage: 20 MG, 1X/DAY
     Route: 048
  9. DOXAZOSIN [Concomitant]
     Active Substance: DOXAZOSIN MESYLATE
     Indication: Hypertension
     Dosage: 1 MG, 1X/DAY
     Route: 048
  10. URAPIDIL [Concomitant]
     Active Substance: URAPIDIL
     Indication: Dysuria
     Dosage: 15 MG, 1X/DAY
     Route: 048
  11. MAGNESIUM OXIDE [Concomitant]
     Active Substance: MAGNESIUM OXIDE
     Indication: Constipation
     Dosage: 330 MG, 2X/DAY
     Route: 048
  12. TRAZODONE [Concomitant]
     Active Substance: TRAZODONE HYDROCHLORIDE
     Indication: Depression
     Dosage: 25 MG, 1X/DAY
     Route: 048
     Dates: start: 20220618, end: 20220721
  13. TEGRETOL [Concomitant]
     Active Substance: CARBAMAZEPINE
     Dosage: 100 MG, 2X/DAY
     Route: 048
     Dates: start: 20220618, end: 20220721

REACTIONS (3)
  - Renal impairment [Recovering/Resolving]
  - Hepatic function abnormal [Recovering/Resolving]
  - Vomiting [Recovered/Resolved]

NARRATIVE: CASE EVENT DATE: 20220723
